FAERS Safety Report 18106576 (Version 6)
Quarter: 2021Q3

REPORT INFORMATION
  Report Type: Report from Study
  Country: US (occurrence: US)
  Receive Date: 20200804
  Receipt Date: 20210927
  Transmission Date: 20211014
  Serious: Yes (Hospitalization)
  Sender: FDA-Public Use
  Company Number: US-GLAXOSMITHKLINE-US2020GSK079211

PATIENT
  Age: 62 Year
  Sex: Male
  Weight: 83.5 kg

DRUGS (36)
  1. ATEZOLIZUMAB. [Suspect]
     Active Substance: ATEZOLIZUMAB
     Indication: TRANSITIONAL CELL CARCINOMA
     Dosage: 1200 MG, Z (EVERY 3 WEEK)
     Route: 041
     Dates: start: 20191004, end: 20191004
  2. ENFORTUMAB VEDOTIN [Suspect]
     Active Substance: ENFORTUMAB VEDOTIN
     Indication: TRANSITIONAL CELL CARCINOMA
     Dosage: 1.25 MG/KG, CYC (DAY 1 AND 8 OF EACH 21 DAY CYCLE)
     Route: 042
     Dates: start: 20191223, end: 20191223
  3. MAGNESIUM CITRATE. [Concomitant]
     Active Substance: MAGNESIUM CITRATE
     Indication: RESTLESSNESS
     Dosage: UNK
     Dates: start: 20200224, end: 20200330
  4. PREDNISONE. [Concomitant]
     Active Substance: PREDNISONE
     Dosage: 80 MG, QD
     Route: 048
     Dates: start: 20200403, end: 20200408
  5. PREDNISONE. [Concomitant]
     Active Substance: PREDNISONE
     Dosage: 20 MG, QD
     Route: 048
     Dates: start: 20200419, end: 20200423
  6. MOVANTIK [Concomitant]
     Active Substance: NALOXEGOL OXALATE
     Indication: CONSTIPATION
     Dosage: UNK
     Dates: start: 20191008
  7. RIZATRIPTAN. [Concomitant]
     Active Substance: RIZATRIPTAN
     Indication: MIGRAINE
     Dosage: UNK
     Dates: start: 2010
  8. VITAMIN D3 [Concomitant]
     Active Substance: CHOLECALCIFEROL
     Indication: NUTRITIONAL SUPPLEMENTATION
     Dosage: UNK
     Dates: start: 20200224
  9. PREDNISONE. [Concomitant]
     Active Substance: PREDNISONE
     Dosage: 40 MG, QD
     Route: 048
     Dates: start: 20200414, end: 20200418
  10. ATEZOLIZUMAB. [Suspect]
     Active Substance: ATEZOLIZUMAB
     Dosage: 1200 MG, Z (EVERY 3 WEEK)
     Route: 041
     Dates: start: 20200224, end: 20200224
  11. ALKA?SELTZER (ACETYLSALICYLIC ACID) [Concomitant]
     Indication: BACK PAIN
     Dosage: UNK
     Dates: start: 20191113
  12. GABAPENTIN. [Concomitant]
     Active Substance: GABAPENTIN
     Indication: NEURALGIA
     Dosage: UNK
     Dates: start: 20200310, end: 20200327
  13. REMERON [Concomitant]
     Active Substance: MIRTAZAPINE
     Indication: RESTLESSNESS
     Dosage: UNK
     Dates: start: 20200130, end: 20200330
  14. SYSTANE (HYPROMELLOSE 2910 (4000 MPA.S)) [Concomitant]
     Active Substance: HYPROMELLOSE 2910 (4000 MPA.S)
     Indication: DRY EYE
     Dosage: UNK
     Dates: start: 20200221
  15. MACROGOL 400 [Concomitant]
     Active Substance: POLYETHYLENE GLYCOL 400
  16. PROPYLENE GLYCOL [Concomitant]
     Active Substance: PROPYLENE GLYCOL
  17. ENFORTUMAB VEDOTIN [Suspect]
     Active Substance: ENFORTUMAB VEDOTIN
     Dosage: UNK
     Route: 042
     Dates: start: 20200720, end: 20210105
  18. OXYCODONE [Concomitant]
     Active Substance: OXYCODONE
     Indication: BACK PAIN
     Dosage: UNK
     Dates: start: 20200115
  19. PANTOPRAZOLE [Concomitant]
     Active Substance: PANTOPRAZOLE
     Dosage: UNK
     Dates: start: 20200312, end: 20200401
  20. NIRAPARIB [Suspect]
     Active Substance: NIRAPARIB
     Indication: TRANSITIONAL CELL CARCINOMA
     Dosage: 200 MG, QD
     Route: 048
     Dates: start: 20191004, end: 20191107
  21. PHENERGAN [Concomitant]
     Active Substance: PROMETHAZINE HYDROCHLORIDE
     Indication: NAUSEA
     Dosage: UNK
     Dates: start: 20191023
  22. GABAPENTIN. [Concomitant]
     Active Substance: GABAPENTIN
     Indication: BACK PAIN
     Dosage: UNK
     Dates: start: 20200115, end: 20200309
  23. OXYCODONE [Concomitant]
     Active Substance: OXYCODONE
     Indication: PROPHYLAXIS
  24. REMERON [Concomitant]
     Active Substance: MIRTAZAPINE
     Indication: ANXIETY
  25. PRED FORTE (PREDNISOLONE ACETATE) [Concomitant]
     Indication: DRY EYE
     Dosage: UNK
     Dates: start: 20200225, end: 20200330
  26. PANTOPRAZOLE [Concomitant]
     Active Substance: PANTOPRAZOLE
     Indication: GASTROOESOPHAGEAL REFLUX DISEASE
     Dosage: UNK
     Dates: start: 20200224, end: 20200312
  27. DIPHENHYDRAMINE. [Concomitant]
     Active Substance: DIPHENHYDRAMINE
     Indication: RASH MACULO-PAPULAR
     Dosage: 25 MG
     Route: 048
     Dates: start: 20200507
  28. PREDNISONE. [Concomitant]
     Active Substance: PREDNISONE
     Dosage: 60 MG, QD
     Route: 048
     Dates: start: 20200409, end: 20200413
  29. ZOFRAN [Concomitant]
     Active Substance: ONDANSETRON HYDROCHLORIDE
     Indication: NAUSEA
     Dosage: UNK
     Dates: start: 20191011
  30. SENOKOT [Concomitant]
     Active Substance: SENNOSIDES
     Indication: CONSTIPATION
     Dosage: UNK
     Dates: start: 20190924
  31. CLOBETASOL PROPIONATE. [Concomitant]
     Active Substance: CLOBETASOL PROPIONATE
     Indication: RASH MACULO-PAPULAR
     Dosage: 0.05 %, Z (1 IN 1 AS REQUIRED)
     Route: 061
     Dates: start: 20200501
  32. PREDNISONE. [Concomitant]
     Active Substance: PREDNISONE
     Dosage: 60 MG, QD
     Route: 048
     Dates: start: 20200401, end: 20200402
  33. ENFORTUMAB VEDOTIN [Suspect]
     Active Substance: ENFORTUMAB VEDOTIN
     Dosage: 95.3 MG, Z (1 IN 1 WK)
     Route: 042
     Dates: start: 20200302, end: 20200302
  34. DOCUSATE [Concomitant]
     Active Substance: DOCUSATE
     Indication: CONSTIPATION
     Dosage: UNK
     Dates: start: 20191220
  35. PREDNISONE. [Concomitant]
     Active Substance: PREDNISONE
     Indication: PANCREATITIS
     Dosage: 80 MG, QD
     Route: 048
     Dates: start: 20200327, end: 20200331
  36. PREDNISONE. [Concomitant]
     Active Substance: PREDNISONE
     Dosage: 10 MG, QD
     Route: 048
     Dates: start: 20200424, end: 20200428

REACTIONS (2)
  - Pancreatitis acute [Not Recovered/Not Resolved]
  - Pancreatitis [Recovered/Resolved]

NARRATIVE: CASE EVENT DATE: 20200428
